FAERS Safety Report 5386140-1 (Version None)
Quarter: 2007Q3

REPORT INFORMATION
  Report Type: 
  Country: None (occurrence: None)
  Receive Date: 20070711
  Receipt Date: 20070711
  Transmission Date: 20080115
  Serious: Yes (Other)
  Sender: FDA-Public Use
  Company Number: None

PATIENT
  Sex: Male
  Weight: 82.9 kg

DRUGS (3)
  1. LUPRON [Suspect]
     Indication: PROSTATE CANCER
     Dosage: 7.5 MG ONCE IM
     Route: 030
     Dates: start: 20070503
  2. LUPRON [Suspect]
     Indication: PROSTATE CANCER
     Dosage: 30 MG ONCE IM
     Route: 030
     Dates: start: 20070607
  3. RADIATION THERAPY [Concomitant]

REACTIONS (6)
  - CYST [None]
  - INJECTION SITE PAIN [None]
  - INJECTION SITE SWELLING [None]
  - MUSCULOSKELETAL STIFFNESS [None]
  - PRURITUS [None]
  - URTICARIA [None]
